FAERS Safety Report 6314770-9 (Version None)
Quarter: 2009Q3

REPORT INFORMATION
  Report Type: 
  Country: None (occurrence: None)
  Receive Date: 20090817
  Receipt Date: 20090803
  Transmission Date: 20100115
  Serious: Yes (Death, Hospitalization)
  Sender: FDA-Public Use
  Company Number: B0588326A

PATIENT
  Age: 69 Year
  Sex: Female
  Weight: 61.8706 kg

DRUGS (5)
  1. ACYCLOVIR [Suspect]
     Indication: ENCEPHALITIS
     Dosage: 10 MG/KG / THREE TIMES PER DAY / INTRA
  2. MYCOPHENOLATE MOFETIL [Concomitant]
  3. PREDNISOLONE [Concomitant]
  4. DIGOXIN [Concomitant]
  5. SINTROM [Concomitant]

REACTIONS (10)
  - COMA [None]
  - ELECTROENCEPHALOGRAM ABNORMAL [None]
  - ENCEPHALOPATHY [None]
  - EPILEPSY [None]
  - HYPOTENSION [None]
  - INTESTINAL ISCHAEMIA [None]
  - LARGE INTESTINE PERFORATION [None]
  - NEUROTOXICITY [None]
  - RESPIRATORY FAILURE [None]
  - SEPSIS [None]
